FAERS Safety Report 10334600 (Version 2)
Quarter: 2014Q3

REPORT INFORMATION
  Report Type: Spontaneous
  Country: US (occurrence: US)
  Receive Date: 20140723
  Receipt Date: 20140723
  Transmission Date: 20150326
  Serious: No
  Sender: FDA-Public Use
  Company Number: US-UNITED THERAPEUTICS-UTC-045812

PATIENT
  Age: 18 Year
  Sex: Female
  Weight: 60.1 kg

DRUGS (6)
  1. REMODULIN [Suspect]
     Active Substance: TREPROSTINIL
     Dosage: 0.072 UG/KG/MIN
     Route: 041
     Dates: start: 20140413
  2. REMODULIN [Suspect]
     Active Substance: TREPROSTINIL
     Dosage: UNK
  3. ADCIRCA [Concomitant]
     Active Substance: TADALAFIL
  4. FLOLAN [Concomitant]
     Active Substance: EPOPROSTENOL SODIUM
  5. REMODULIN [Suspect]
     Active Substance: TREPROSTINIL
     Dosage: 0.067 UG/KG/MIN
     Route: 058
     Dates: start: 20130615
  6. COUMADIN [Concomitant]
     Active Substance: WARFARIN SODIUM

REACTIONS (7)
  - Injection site discharge [Unknown]
  - Injection site pruritus [Unknown]
  - Infusion site vesicles [Unknown]
  - Injection site erythema [Unknown]
  - Infusion site irritation [Unknown]
  - Injection site irritation [Unknown]
  - Injection site swelling [Unknown]

NARRATIVE: CASE EVENT DATE: 20140224
